FAERS Safety Report 4558029-9 (Version None)
Quarter: 2005Q1

REPORT INFORMATION
  Report Type: 
  Country: None (occurrence: None)
  Receive Date: 20050121
  Receipt Date: 20040604
  Transmission Date: 20050727
  Serious: No
  Sender: FDA-Public Use
  Company Number: US-BRISTOL-MYERS SQUIBB COMPANY-12606786

PATIENT
  Sex: Female

DRUGS (2)
  1. SERZONE [Suspect]
     Indication: OBSESSIVE-COMPULSIVE DISORDER
     Dosage: HAD TAKEN 450 MG DAILY FOR MANY YEARS PRIOR TO BEING WEANED OFF THE DRUG
     Route: 048
     Dates: end: 20040602
  2. LEXAPRO [Concomitant]

REACTIONS (1)
  - DRUG WITHDRAWAL SYNDROME [None]
